FAERS Safety Report 12912435 (Version 1)
Quarter: 2016Q4

REPORT INFORMATION
  Report Type: Spontaneous
  Country: FR (occurrence: FR)
  Receive Date: 20161104
  Receipt Date: 20161104
  Transmission Date: 20170207
  Serious: Yes (Other)
  Sender: FDA-Public Use
  Company Number: PHHY2016FR148780

PATIENT
  Age: 89 Year
  Sex: Male

DRUGS (2)
  1. RIMACTAN SANDOZ [Suspect]
     Active Substance: RIFAMPIN
     Indication: WOUND INFECTION
     Dosage: 300 MG, TID
     Route: 048
     Dates: start: 20151028
  2. FUCIDINE [Suspect]
     Active Substance: FUSIDIC ACID
     Indication: WOUND INFECTION
     Dosage: 500 MG, TID
     Route: 048
     Dates: start: 20151028

REACTIONS (3)
  - Antibiotic level above therapeutic [Unknown]
  - Cholestasis [Unknown]
  - Pruritus [Recovered/Resolved]

NARRATIVE: CASE EVENT DATE: 20151103
